FAERS Safety Report 16724083 (Version 1)
Quarter: 2019Q3

REPORT INFORMATION
  Report Type: Spontaneous
  Country: GB (occurrence: GB)
  Receive Date: 20190821
  Receipt Date: 20190821
  Transmission Date: 20191005
  Serious: Yes (Hospitalization)
  Sender: FDA-Public Use
  Company Number: GB-ALVOGEN-2019-ALVOGEN-101050

PATIENT
  Age: 60 Year
  Sex: Female

DRUGS (1)
  1. HYDROCHLOROTHIAZIDE AND LISINOPRIL [Suspect]
     Active Substance: HYDROCHLOROTHIAZIDE\LISINOPRIL
     Indication: HYPERTENSION
     Dosage: 10 MG/12.5 MG
     Route: 048

REACTIONS (6)
  - Chromaturia [Unknown]
  - Hepatitis viral [Unknown]
  - Nausea [Unknown]
  - Abdominal pain [Unknown]
  - Jaundice [Unknown]
  - Faeces pale [Unknown]
